FAERS Safety Report 23658756 (Version 1)
Quarter: 2024Q1

REPORT INFORMATION
  Report Type: Spontaneous
  Country: BR (occurrence: BR)
  Receive Date: 20240321
  Receipt Date: 20240321
  Transmission Date: 20240409
  Serious: Yes (Other)
  Sender: FDA-Public Use
  Company Number: BR-TAKEDA-2024TUS024416

PATIENT
  Age: 41 Year
  Sex: Female

DRUGS (1)
  1. MESALAMINE [Suspect]
     Active Substance: MESALAMINE
     Indication: Colitis ulcerative
     Dosage: UNK
     Route: 065

REACTIONS (11)
  - Crohn^s disease [Unknown]
  - Abdominal discomfort [Unknown]
  - Mucous stools [Unknown]
  - Anxiety [Unknown]
  - Enteritis [Unknown]
  - Ulcer [Unknown]
  - Tearfulness [Unknown]
  - Gardnerella test positive [Unknown]
  - Fungal test positive [Unknown]
  - Ureaplasma test positive [Unknown]
  - Human papilloma virus test positive [Unknown]

NARRATIVE: CASE EVENT DATE: 20240111
